FAERS Safety Report 18007012 (Version 1)
Quarter: 2020Q3

REPORT INFORMATION
  Report Type: Spontaneous
  Country: US (occurrence: US)
  Receive Date: 20200710
  Receipt Date: 20200710
  Transmission Date: 20201103
  Serious: Yes (Other)
  Sender: FDA-Public Use
  Company Number: None

PATIENT
  Age: 71 Year
  Sex: Male
  Weight: 88.2 kg

DRUGS (8)
  1. ARMOUR THYROID [Concomitant]
     Active Substance: THYROID, PORCINE
  2. HCTZ [Concomitant]
     Active Substance: HYDROCHLOROTHIAZIDE
  3. ONE?A?DAY VITAMIN [Concomitant]
  4. CLONIDINE. [Concomitant]
     Active Substance: CLONIDINE
  5. ASPRIN [Concomitant]
     Active Substance: ASPIRIN
  6. ATORVASTATIN [Concomitant]
     Active Substance: ATORVASTATIN
  7. OMPERAZOLE [Concomitant]
     Active Substance: OMEPRAZOLE
  8. TESTOSTERONE CYPIONATE, 200MG/ML INJECTION, 10 ML VIAL [Suspect]
     Active Substance: TESTOSTERONE CYPIONATE
     Indication: HORMONE REPLACEMENT THERAPY
     Dosage: ?          QUANTITY:10 ML;OTHER FREQUENCY:.5ML/5 DAYS;?
     Route: 030
     Dates: start: 20200604, end: 20200704

REACTIONS (4)
  - Injection site bruising [None]
  - Injection site pain [None]
  - Product quality issue [None]
  - Injection site swelling [None]

NARRATIVE: CASE EVENT DATE: 20200704
